FAERS Safety Report 6453302-1 (Version None)
Quarter: 2009Q4

REPORT INFORMATION
  Report Type: 
  Country: None (occurrence: None)
  Receive Date: 20091117
  Receipt Date: 20091105
  Transmission Date: 20100525
  Serious: Yes (Disabling)
  Sender: FDA-Public Use
  Company Number: 230111K09IRL

PATIENT
  Age: 26 Year
  Sex: Female

DRUGS (5)
  1. REBIF [Suspect]
     Dosage: 8.8 MCG, 3 IN 1 WEEKS; 44 MCG, 3 IN 1 WEEKS; 22 MCG, 3 IN 1 WEEKS
     Dates: start: 20090101, end: 20090101
  2. REBIF [Suspect]
     Dosage: 8.8 MCG, 3 IN 1 WEEKS; 44 MCG, 3 IN 1 WEEKS; 22 MCG, 3 IN 1 WEEKS
     Dates: start: 20090728, end: 20090101
  3. REBIF [Suspect]
     Dosage: 8.8 MCG, 3 IN 1 WEEKS; 44 MCG, 3 IN 1 WEEKS; 22 MCG, 3 IN 1 WEEKS
     Dates: start: 20090101, end: 20091016
  4. MICROLYTE (MICROLITE) (ETHINYL ESTRADIOL W/NORGESTREL) [Concomitant]
  5. LISINOPRIL [Concomitant]

REACTIONS (4)
  - EAR PAIN [None]
  - INFLUENZA LIKE ILLNESS [None]
  - INJECTION SITE ERYTHEMA [None]
  - PHARYNGITIS [None]
